FAERS Safety Report 15533421 (Version 1)
Quarter: 2018Q4

REPORT INFORMATION
  Report Type: Spontaneous
  Country: JP (occurrence: JP)
  Receive Date: 20181019
  Receipt Date: 20181019
  Transmission Date: 20190205
  Serious: Yes (Other)
  Sender: FDA-Public Use
  Company Number: JP-JNJFOC-20181021670

PATIENT
  Sex: Female

DRUGS (12)
  1. MEILAX [Concomitant]
     Active Substance: ETHYL LOFLAZEPATE
     Dosage: AT BEDTIME
     Route: 048
  2. VOGLIBOSE [Concomitant]
     Active Substance: VOGLIBOSE
     Dosage: AT BEDTIME
     Route: 048
  3. TENORMIN [Concomitant]
     Active Substance: ATENOLOL
     Dosage: IN THE MORNING
     Route: 048
  4. KEISHIBUKURYOGAN [Concomitant]
     Active Substance: HERBALS
     Dosage: AT BEDTIME
     Route: 048
  5. ROZEREM [Concomitant]
     Active Substance: RAMELTEON
     Dosage: AT BEDTIME
     Route: 048
  6. LUNABELL [Concomitant]
     Active Substance: ETHINYL ESTRADIOL\NORETHINDRONE
     Dosage: AT BEDTIME
     Route: 048
  7. PRIMPERAN [Concomitant]
     Active Substance: METOCLOPRAMIDE HYDROCHLORIDE
     Dosage: AT BEDTIME
     Route: 065
  8. SAIKOKARYUKOTSUBOREITO [Concomitant]
     Active Substance: HERBALS
     Dosage: AT BEDTIME
     Route: 048
  9. METHYLPHENIDATE HYDROCHLORIDE. [Suspect]
     Active Substance: METHYLPHENIDATE HYDROCHLORIDE
     Indication: PRODUCT USED FOR UNKNOWN INDICATION
     Dosage: IN THE MORNING(36MG PLUS 18MG)
     Route: 048
  10. STRATTERA [Concomitant]
     Active Substance: ATOMOXETINE HYDROCHLORIDE
     Dosage: IN THE EVENING
     Route: 048
  11. AMOBAN [Concomitant]
     Active Substance: ZOPICLONE
     Dosage: AT BEDTIME
     Route: 048
  12. CYMBALTA [Concomitant]
     Active Substance: DULOXETINE HYDROCHLORIDE
     Dosage: IN THE MORNING(30MG PLUS 20MG)
     Route: 048

REACTIONS (10)
  - Dizziness [Unknown]
  - Hot flush [Unknown]
  - Dysmenorrhoea [Unknown]
  - Abdominal distension [Unknown]
  - Pruritus [Unknown]
  - Throat tightness [Unknown]
  - Diabetes mellitus [Unknown]
  - Hepatic steatosis [Unknown]
  - Weight increased [Unknown]
  - Skin burning sensation [Unknown]
